FAERS Safety Report 5672531-8 (Version None)
Quarter: 2008Q1

REPORT INFORMATION
  Report Type: 
  Country: None (occurrence: None)
  Receive Date: 20080318
  Receipt Date: 20080318
  Transmission Date: 20080703
  Serious: Yes (Hospitalization)
  Sender: FDA-Public Use
  Company Number: None

PATIENT
  Sex: Male
  Weight: 87.27 kg

DRUGS (2)
  1. TEMOZOLOMIDE [Suspect]
     Dosage: 3040 MG
  2. PENTAMIDINE INHALATION THERAPY [Concomitant]

REACTIONS (5)
  - ASTHENIA [None]
  - CHILLS [None]
  - CONFUSIONAL STATE [None]
  - GAIT DISTURBANCE [None]
  - PANCREATITIS ACUTE [None]
